FAERS Safety Report 19844475 (Version 1)
Quarter: 2021Q3

REPORT INFORMATION
  Report Type: Not Available
  Country: None (occurrence: None)
  Receive Date: 20210916
  Receipt Date: 20210916
  Transmission Date: 20211014
  Serious: No
  Sender: FDA-Public Use
  Company Number: US-AKORN-171209

PATIENT
  Sex: Male

DRUGS (1)
  1. TIMOLOL MALEATE OPHTHALMIC SOLUTION, USP [Suspect]
     Active Substance: TIMOLOL MALEATE

REACTIONS (1)
  - Vision blurred [Not Recovered/Not Resolved]
